FAERS Safety Report 21755950 (Version 1)
Quarter: 2022Q4

REPORT INFORMATION
  Report Type: Spontaneous
  Country: CA (occurrence: CA)
  Receive Date: 20221220
  Receipt Date: 20221220
  Transmission Date: 20230113
  Serious: Yes (Other)
  Sender: FDA-Public Use
  Company Number: CA-VIIV HEALTHCARE LIMITED-CA2022166040

PATIENT
  Age: 42 Year
  Sex: Female

DRUGS (4)
  1. RILPIVIRINE [Suspect]
     Active Substance: RILPIVIRINE
     Indication: HIV infection
     Dosage: UNK (600 MG) CABOTEGRAVIR AND (900 MG) RILPIVIRINE
     Route: 030
     Dates: start: 20221111
  2. CABOTEGRAVIR [Suspect]
     Active Substance: CABOTEGRAVIR
     Indication: HIV infection
     Dosage: UNK
     Route: 030
     Dates: start: 20221111
  3. VOCABRIA [CABOTEGRAVIR SODIUM] [Concomitant]
     Indication: Product used for unknown indication
     Dosage: UNK
     Route: 048
     Dates: end: 2022
  4. EDURANT [Concomitant]
     Active Substance: RILPIVIRINE HYDROCHLORIDE
     Indication: Product used for unknown indication
     Dosage: UNK
     Route: 048
     Dates: end: 2022

REACTIONS (4)
  - Cellulitis [Unknown]
  - Erythema [Not Recovered/Not Resolved]
  - Skin warm [Not Recovered/Not Resolved]
  - Off label use [Unknown]
